FAERS Safety Report 5834589-2 (Version None)
Quarter: 2008Q3

REPORT INFORMATION
  Report Type: 
  Country: None (occurrence: None)
  Receive Date: 20080801
  Receipt Date: 20080728
  Transmission Date: 20090109
  Serious: Yes (Other)
  Sender: FDA-Public Use
  Company Number: US024206

PATIENT
  Sex: Female

DRUGS (1)
  1. TREANDA [Suspect]
     Dosage: UNK INTRAVENOUS

REACTIONS (2)
  - CYTOMEGALOVIRUS INFECTION [None]
  - DISEASE RECURRENCE [None]
